FAERS Safety Report 13736399 (Version 1)
Quarter: 2017Q3

REPORT INFORMATION
  Report Type: Spontaneous
  Country: GB (occurrence: GB)
  Receive Date: 20170710
  Receipt Date: 20170710
  Transmission Date: 20171127
  Serious: Yes (Other)
  Sender: FDA-Public Use
  Company Number: GB-BAYER-2017-127210

PATIENT
  Age: 75 Year
  Sex: Male

DRUGS (2)
  1. NICORANDIL [Suspect]
     Active Substance: NICORANDIL
     Dosage: UNK
  2. ACETYLSALICYLIC ACID (} 100 MG) [Suspect]
     Active Substance: ASPIRIN
     Dosage: UNK

REACTIONS (2)
  - Soft tissue necrosis [None]
  - Perineal ulceration [Recovered/Resolved]
